FAERS Safety Report 6235357-2 (Version None)
Quarter: 2009Q2

REPORT INFORMATION
  Report Type: 
  Country: None (occurrence: None)
  Receive Date: 20090615
  Receipt Date: 20090603
  Transmission Date: 20091009
  Serious: No
  Sender: FDA-Public Use
  Company Number: 2009AP002252

PATIENT
  Age: 16 Year
  Sex: Female

DRUGS (4)
  1. CARBAMAZEPINE [Suspect]
     Indication: EPILEPSY
     Dosage: 200 MG;TAB; PO;QID
     Route: 048
     Dates: start: 20090113
  2. VALPROIC ACID [Suspect]
     Dosage: 250 MG;CAP;PO;QD
     Route: 048
     Dates: start: 20090528
  3. LEVONORGESTREL [Concomitant]
  4. ETHINYL ESTRADIOL TAB [Concomitant]

REACTIONS (3)
  - FOOD ALLERGY [None]
  - HYPERSENSITIVITY [None]
  - REACTION TO DRUG EXCIPIENTS [None]
